FAERS Safety Report 8843579 (Version 2)
Quarter: 2015Q3

REPORT INFORMATION
  Report Type: Report from Study
  Country: US (occurrence: US)
  Receive Date: 20121016
  Receipt Date: 20150813
  Transmission Date: 20151125
  Serious: Yes (Other)
  Sender: FDA-Public Use
  Company Number: US-ROCHE-1138056

PATIENT
  Sex: Male
  Weight: 50.1 kg

DRUGS (2)
  1. NUTROPIN [Suspect]
     Active Substance: SOMATROPIN
     Indication: GROWTH HORMONE DEFICIENCY
     Route: 065
  2. NUTROPIN [Suspect]
     Active Substance: SOMATROPIN
     Indication: GROWTH HORMONE DEFICIENCY
     Route: 058

REACTIONS (2)
  - Fracture [Unknown]
  - Nasopharyngitis [Unknown]
